FAERS Safety Report 25267342 (Version 1)
Quarter: 2025Q2

REPORT INFORMATION
  Report Type: Spontaneous
  Country: US (occurrence: US)
  Receive Date: 20250505
  Receipt Date: 20250505
  Transmission Date: 20250717
  Serious: Yes (Hospitalization)
  Sender: Steriscience PTE
  Company Number: US-STERISCIENCE B.V.-2025-ST-000799

PATIENT
  Age: 32 Year
  Sex: Female

DRUGS (2)
  1. ACETYLCYSTEINE [Suspect]
     Active Substance: ACETYLCYSTEINE
     Indication: Product used for unknown indication
     Route: 042
  2. FENBENDAZOLE [Concomitant]
     Active Substance: FENBENDAZOLE
     Indication: Drug therapy
     Route: 065

REACTIONS (1)
  - Therapy non-responder [Unknown]
